FAERS Safety Report 5001575-4 (Version None)
Quarter: 2006Q2

REPORT INFORMATION
  Report Type: 
  Country: None (occurrence: None)
  Receive Date: 20060510
  Receipt Date: 20060501
  Transmission Date: 20061013
  Serious: Yes (Other)
  Sender: FDA-Public Use
  Company Number: 2005172162

PATIENT
  Sex: Female

DRUGS (5)
  1. CADUET [Suspect]
     Indication: BLOOD CHOLESTEROL INCREASED
     Dosage: 5/10 MG (1 IN 1 D), UNKNOWN
     Dates: start: 20040901, end: 20051201
  2. CADUET [Suspect]
     Indication: HYPERTENSION
     Dosage: 5/10 MG (1 IN 1 D), UNKNOWN
     Dates: start: 20040901, end: 20051201
  3. LIPITOR [Suspect]
     Indication: BLOOD CHOLESTEROL INCREASED
     Dosage: 10 M (10 MG, 1 IN 1 D), UNKNOWN
     Dates: start: 19990101, end: 20040101
  4. NORVASC [Suspect]
     Indication: HYPERTENSION
     Dosage: 5 MG (5 MG, 1 IN 1 D), UNKNOWN
     Dates: start: 20000101
  5. ALL OTHER THERAPEUTIC PRODUCTS (ALL OTHER THERAPEUTIC PRODUCTS) [Concomitant]

REACTIONS (4)
  - ALANINE AMINOTRANSFERASE INCREASED [None]
  - ASPARTATE AMINOTRANSFERASE INCREASED [None]
  - KNEE ARTHROPLASTY [None]
  - LIVER FUNCTION TEST ABNORMAL [None]
